FAERS Safety Report 4668650-5 (Version None)
Quarter: 2005Q2

REPORT INFORMATION
  Report Type: 
  Country: None (occurrence: None)
  Receive Date: 20050523
  Receipt Date: 20040428
  Transmission Date: 20051028
  Serious: No
  Sender: FDA-Public Use
  Company Number: US-GLAXOSMITHKLINE-A0508743A

PATIENT

DRUGS (1)
  1. FLOLAN [Suspect]

REACTIONS (1)
  - INFECTION [None]
